FAERS Safety Report 13507590 (Version 1)
Quarter: 2017Q2

REPORT INFORMATION
  Report Type: Spontaneous
  Country: GB (occurrence: GB)
  Receive Date: 20170503
  Receipt Date: 20170503
  Transmission Date: 20170830
  Serious: Yes (Disabling, Other)
  Sender: FDA-Public Use
  Company Number: PHFR2017GB002923

PATIENT
  Age: 62 Year
  Sex: Female
  Weight: 50.8 kg

DRUGS (2)
  1. OMEPRAZOLE. [Suspect]
     Active Substance: OMEPRAZOLE
     Indication: GASTROOESOPHAGEAL REFLUX DISEASE
     Dosage: 20 MG, UNK
     Route: 048
     Dates: start: 20170324, end: 20170331
  2. CALCICHEW [Concomitant]
     Active Substance: CALCIUM CARBONATE
     Indication: PRODUCT USED FOR UNKNOWN INDICATION
     Route: 065

REACTIONS (20)
  - Asthenia [Recovered/Resolved with Sequelae]
  - Diarrhoea [Recovered/Resolved]
  - Vision blurred [Recovered/Resolved with Sequelae]
  - Malaise [Recovered/Resolved with Sequelae]
  - Paraesthesia [Recovered/Resolved with Sequelae]
  - Confusional state [Recovering/Resolving]
  - Hyperhidrosis [Recovering/Resolving]
  - Agitation [Recovering/Resolving]
  - Nausea [Recovered/Resolved with Sequelae]
  - Dry mouth [Recovered/Resolved with Sequelae]
  - Somnolence [Recovered/Resolved with Sequelae]
  - Abdominal pain upper [Recovered/Resolved]
  - Dizziness [Recovered/Resolved with Sequelae]
  - Dysgeusia [Recovered/Resolved with Sequelae]
  - Headache [Recovered/Resolved with Sequelae]
  - Flatulence [Recovered/Resolved]
  - Vomiting [Recovered/Resolved with Sequelae]
  - Wheezing [Not Recovered/Not Resolved]
  - Disturbance in attention [Unknown]
  - Vertigo [Not Recovered/Not Resolved]

NARRATIVE: CASE EVENT DATE: 20170328
